FAERS Safety Report 19363040 (Version 1)
Quarter: 2021Q2

REPORT INFORMATION
  Report Type: Spontaneous
  Country: CN (occurrence: CN)
  Receive Date: 20210603
  Receipt Date: 20210603
  Transmission Date: 20210717
  Serious: Yes (Other)
  Sender: FDA-Public Use
  Company Number: CN-SA-2021SA180240

PATIENT
  Age: 66 Year
  Sex: Male
  Weight: 51 kg

DRUGS (1)
  1. HARNAL [Suspect]
     Active Substance: TAMSULOSIN HYDROCHLORIDE
     Indication: BENIGN PROSTATIC HYPERPLASIA
     Dosage: 0.2 MG, ONCE DAILY
     Route: 048
     Dates: start: 20210505, end: 20210515

REACTIONS (4)
  - Depressed level of consciousness [Recovering/Resolving]
  - Breath sounds abnormal [Unknown]
  - Rales [Unknown]
  - Cyanosis [Unknown]

NARRATIVE: CASE EVENT DATE: 20210515
